FAERS Safety Report 11092896 (Version 1)
Quarter: 2015Q2

REPORT INFORMATION
  Report Type: Spontaneous
  Country: US (occurrence: None)
  Receive Date: 20150504
  Receipt Date: 20150504
  Transmission Date: 20150821
  Serious: Yes (Hospitalization, Other)
  Sender: FDA-Public Use
  Company Number: US2015055006

PATIENT
  Sex: Male

DRUGS (2)
  1. SUSTIVA [Concomitant]
     Active Substance: EFAVIRENZ
  2. COMBIVIR [Suspect]
     Active Substance: LAMIVUDINE\ZIDOVUDINE
     Indication: HIV INFECTION
     Route: 048
     Dates: start: 2001, end: 201409

REACTIONS (6)
  - Suicide attempt [None]
  - Fat redistribution [None]
  - Fatigue [None]
  - Bedridden [None]
  - Facial wasting [None]
  - Depression [None]

NARRATIVE: CASE EVENT DATE: 2002
